FAERS Safety Report 8248191-9 (Version None)
Quarter: 2012Q1

REPORT INFORMATION
  Report Type: 
  Country: None (occurrence: None)
  Receive Date: 20120330
  Receipt Date: 20120327
  Transmission Date: 20120608
  Serious: Yes (Hospitalization)
  Sender: FDA-Public Use
  Company Number: GB-ABBOTT-12P-167-0919048-00

PATIENT
  Sex: Female
  Weight: 78 kg

DRUGS (2)
  1. STEROIDS [Concomitant]
     Indication: PRODUCT USED FOR UNKNOWN INDICATION
  2. HUMIRA [Suspect]
     Indication: RHEUMATOID ARTHRITIS
     Route: 058
     Dates: start: 20060316

REACTIONS (3)
  - GROIN PAIN [None]
  - ARTHRALGIA [None]
  - MOBILITY DECREASED [None]
